FAERS Safety Report 22535346 (Version 1)
Quarter: 2023Q2

REPORT INFORMATION
  Report Type: Spontaneous
  Country: US (occurrence: None)
  Receive Date: 20230607
  Receipt Date: 20230607
  Transmission Date: 20230722
  Serious: Yes (Life-Threatening, Hospitalization, Other)
  Sender: FDA-Public Use
  Company Number: None

PATIENT
  Age: 50 Year
  Sex: Female
  Weight: 68.4 kg

DRUGS (1)
  1. BLISOVI FE 1/20 [Suspect]
     Active Substance: ETHINYL ESTRADIOL\NORETHINDRONE ACETATE
     Indication: Menstruation irregular
     Dosage: OTHER QUANTITY : 1 TABLET(S);?FREQUENCY : DAILY;?
     Route: 048
     Dates: start: 20100710, end: 20210619

REACTIONS (8)
  - Road traffic accident [None]
  - Peripheral swelling [None]
  - Cerebrovascular accident [None]
  - Cerebral thrombosis [None]
  - Atrial septal defect [None]
  - Heavy menstrual bleeding [None]
  - Anaemia [None]
  - Pain [None]

NARRATIVE: CASE EVENT DATE: 20210620
